FAERS Safety Report 5347004-2 (Version None)
Quarter: 2007Q2

REPORT INFORMATION
  Report Type: 
  Country: None (occurrence: None)
  Receive Date: 20070604
  Receipt Date: 20070509
  Transmission Date: 20071010
  Serious: Yes (Hospitalization)
  Sender: FDA-Public Use
  Company Number: 100#08#2007-01503

PATIENT
  Age: 39 Year
  Sex: Female

DRUGS (2)
  1. ACTIVATED CHARCOAL (CHARCOAL, ACTIVATED) (ACTIVATED CHARCOAL) [Suspect]
     Dosage: 50 G ORAL TWO DOSES ADMINISTERED 4 HOURS APART
     Route: 048
  2. AMITRIPTYLINE (AMITRITPYLINE)(AMITRIPTYLINE) [Suspect]
     Indication: DEPRESSION

REACTIONS (17)
  - ABDOMINAL DISCOMFORT [None]
  - ACUTE RESPIRATORY DISTRESS SYNDROME [None]
  - BACTERIAL SEPSIS [None]
  - BACTEROIDES INFECTION [None]
  - DEPRESSION [None]
  - DRY MOUTH [None]
  - HYPOTENSION [None]
  - INTESTINAL PERFORATION [None]
  - LARGE INTESTINE PERFORATION [None]
  - LETHARGY [None]
  - LEUKOCYTOSIS [None]
  - OVERDOSE [None]
  - PERITONEAL DISORDER [None]
  - POST PROCEDURAL COMPLICATION [None]
  - PYREXIA [None]
  - SUICIDAL BEHAVIOUR [None]
  - WHITE BLOOD CELL COUNT INCREASED [None]
